FAERS Safety Report 9528025 (Version 1)
Quarter: 2013Q1

REPORT INFORMATION
  Report Type: Spontaneous
  Country: US (occurrence: None)
  Receive Date: 20130314
  Receipt Date: 20130314
  Transmission Date: 20140127
  Serious: No
  Sender: FDA-Public Use
  Company Number: 1211USA009945

PATIENT
  Age: 58 Year
  Sex: Male

DRUGS (10)
  1. VICTRELIS [Suspect]
     Indication: CHRONIC HEPATITIS C
     Route: 048
     Dates: start: 20121025
  2. PEGASYS (PEGINTERFERON ALFA-2A) [Suspect]
  3. RIBASPHERE (RIBAVIRIN) [Suspect]
  4. CIALIS (TADALAFI) [Concomitant]
  5. JANUMENT (SITAGLIPTIN PHOSPHATE (+) METFORMIN [Concomitant]
  6. AMARYL (GLIMEPIRIDE) [Concomitant]
  7. TEKTURNA (ALISKIREN FUMARATE) [Concomitant]
  8. ZOLOFT (SERTRALINE HYDROCHLORIDE) [Concomitant]
  9. VALTREX (VALACYCLOVIR HYDROCHLORIDE) [Concomitant]
  10. NEXIUM (ESOMEPRAZOLE MAGNESIUM) CAPSULE [Concomitant]

REACTIONS (2)
  - Fatigue [None]
  - Haematocrit decreased [None]
